FAERS Safety Report 5234182-9 (Version None)
Quarter: 2007Q1

REPORT INFORMATION
  Report Type: 
  Country: None (occurrence: None)
  Receive Date: 20070209
  Receipt Date: 20070129
  Transmission Date: 20070707
  Serious: Yes (Death)
  Sender: FDA-Public Use
  Company Number: CA-JNJFOC-20061003964

PATIENT
  Age: 48 Year
  Sex: Male

DRUGS (5)
  1. TYLENOL W/ CODEINE [Suspect]
     Indication: PAIN
  2. CESAMET [Suspect]
  3. CESAMET [Suspect]
     Indication: PAIN
  4. ELAVIL [Concomitant]
     Indication: DRUG USE FOR UNKNOWN INDICATION
     Dosage: AT BEDTIME
  5. CODEINE CONTIN [Concomitant]
     Indication: DRUG USE FOR UNKNOWN INDICATION
     Dosage: AT BEDTIME

REACTIONS (3)
  - COMPLETED SUICIDE [None]
  - DEPRESSION [None]
  - EUPHORIC MOOD [None]
